FAERS Safety Report 5115591-5 (Version None)
Quarter: 2006Q3

REPORT INFORMATION
  Report Type: 
  Country: None (occurrence: None)
  Receive Date: 20060925
  Receipt Date: 20060913
  Transmission Date: 20061208
  Serious: Yes (Death, Other)
  Sender: FDA-Public Use
  Company Number: 2006SP001450

PATIENT
  Sex: Male

DRUGS (2)
  1. TEMODAR [Suspect]
     Indication: GLIOBLASTOMA MULTIFORME
  2. RADIATION THERAPY [Suspect]
     Indication: GLIOBLASTOMA MULTIFORME

REACTIONS (1)
  - OEDEMA [None]
